FAERS Safety Report 16472999 (Version 2)
Quarter: 2019Q3

REPORT INFORMATION
  Report Type: Spontaneous
  Country: US (occurrence: US)
  Receive Date: 20190625
  Receipt Date: 20190811
  Transmission Date: 20191004
  Serious: Yes (Other)
  Sender: FDA-Public Use
  Company Number: PHEH2019US026281

PATIENT
  Age: 64 Year
  Sex: Male

DRUGS (2)
  1. AFINITOR [Suspect]
     Active Substance: EVEROLIMUS
     Indication: RENAL CANCER
     Dosage: 5 MG, QD
     Route: 048
  2. LENVATINIB [Suspect]
     Active Substance: LENVATINIB
     Indication: RENAL CANCER
     Dosage: 18 MG, QD
     Route: 048

REACTIONS (9)
  - Neoplasm [Unknown]
  - Constipation [Recovered/Resolved]
  - Diarrhoea [Recovered/Resolved]
  - Metastases to bone [Unknown]
  - Fatigue [Not Recovered/Not Resolved]
  - Femur fracture [Unknown]
  - Pain [Unknown]
  - Diarrhoea [Unknown]
  - Ilium fracture [Unknown]

NARRATIVE: CASE EVENT DATE: 20190605
